FAERS Safety Report 7216261-X (Version None)
Quarter: 2011Q1

REPORT INFORMATION
  Report Type: 
  Country: None (occurrence: None)
  Receive Date: 20110107
  Receipt Date: 20101130
  Transmission Date: 20110831
  Serious: Yes (Hospitalization, Other)
  Sender: FDA-Public Use
  Company Number: US-BAYER-201033773NA

PATIENT
  Sex: Female
  Weight: 79.819 kg

DRUGS (7)
  1. YAZ [Suspect]
     Indication: CONTRACEPTION
     Dosage: UNK UNK, UNK
     Route: 048
     Dates: start: 20071230, end: 20080324
  2. YASMIN [Suspect]
     Dosage: UNK
     Dates: start: 20060716, end: 20060813
  3. YASMIN [Suspect]
     Dosage: UNK
     Dates: start: 20061008, end: 20071105
  4. PREVACID [Concomitant]
     Indication: ABDOMINAL PAIN UPPER
     Dosage: 30 MG, QD
  5. OCELLA [Suspect]
     Indication: CONTRACEPTION
     Dosage: UNK UNK, UNK
     Route: 048
     Dates: start: 20080713, end: 20090127
  6. YASMIN [Suspect]
     Dosage: UNK
     Dates: start: 20080421, end: 20080616
  7. YASMIN [Suspect]
     Indication: CONTRACEPTION
     Dosage: UNK UNK, UNK
     Route: 048
     Dates: start: 20050525, end: 20060523

REACTIONS (6)
  - BILIARY DYSKINESIA [None]
  - ABDOMINAL PAIN [None]
  - NAUSEA [None]
  - VOMITING [None]
  - CHOLECYSTITIS CHRONIC [None]
  - DIARRHOEA [None]
